FAERS Safety Report 12702870 (Version 1)
Quarter: 2016Q3

REPORT INFORMATION
  Report Type: Report from Study
  Country: US (occurrence: US)
  Receive Date: 20160831
  Receipt Date: 20160831
  Transmission Date: 20161109
  Serious: Yes (Congenital Anomaly, Other)
  Sender: FDA-Public Use
  Company Number: US-ROCHE-1417131

PATIENT
  Sex: Female
  Weight: 17.6 kg

DRUGS (15)
  1. NUTROPIN AQ [Suspect]
     Active Substance: SOMATROPIN
     Route: 058
  2. ABILIFY [Concomitant]
     Active Substance: ARIPIPRAZOLE
  3. MIRALAX [Concomitant]
     Active Substance: POLYETHYLENE GLYCOL 3350
  4. NUTROPIN AQ [Suspect]
     Active Substance: SOMATROPIN
     Route: 058
  5. NUTROPIN AQ [Suspect]
     Active Substance: SOMATROPIN
     Route: 058
  6. SODIUM BENZOATE [Concomitant]
     Active Substance: SODIUM BENZOATE
  7. NUTROPIN AQ [Suspect]
     Active Substance: SOMATROPIN
     Indication: GROWTH HORMONE DEFICIENCY
     Route: 058
     Dates: start: 20090313
  8. NUTROPIN AQ [Suspect]
     Active Substance: SOMATROPIN
     Route: 058
  9. NUTROPIN AQ [Suspect]
     Active Substance: SOMATROPIN
     Route: 058
  10. NUTROPIN AQ [Suspect]
     Active Substance: SOMATROPIN
     Route: 058
  11. CITRULLINE [Concomitant]
     Active Substance: CITRULLINE
  12. RISPERIDONE. [Concomitant]
     Active Substance: RISPERIDONE
  13. NUTROPIN AQ [Suspect]
     Active Substance: SOMATROPIN
     Route: 058
  14. NUTROPIN AQ [Suspect]
     Active Substance: SOMATROPIN
     Route: 058
     Dates: start: 20130919
  15. L-LYSINE [Concomitant]
     Active Substance: LYSINE

REACTIONS (17)
  - Sinusitis [Unknown]
  - Emotional distress [Unknown]
  - Lysinuric protein intolerance [Unknown]
  - Sleep apnoea syndrome [Unknown]
  - Dysphonia [Unknown]
  - Congenital anomaly [Unknown]
  - Oestrogenic effect [Unknown]
  - Constipation [Unknown]
  - Pharyngitis streptococcal [Unknown]
  - Otitis media [Unknown]
  - Hypothyroidism [Unknown]
  - Restlessness [Unknown]
  - Hand deformity [Unknown]
  - Headache [Unknown]
  - Abdominal pain [Unknown]
  - Vomiting [Unknown]
  - Asthenia [Unknown]
